FAERS Safety Report 8010283-7 (Version None)
Quarter: 2011Q4

REPORT INFORMATION
  Report Type: 
  Country: None (occurrence: None)
  Receive Date: 20111228
  Receipt Date: 20111220
  Transmission Date: 20120403
  Serious: Yes (Hospitalization)
  Sender: FDA-Public Use
  Company Number: US-JNJFOC-20111208801

PATIENT
  Sex: Male
  Weight: 113.4 kg

DRUGS (2)
  1. REMICADE [Suspect]
     Indication: COLONIC POLYP
     Route: 042
     Dates: end: 20110801
  2. AZATHIOPRINE [Concomitant]
     Indication: COLONIC POLYP
     Route: 048
     Dates: start: 20030101

REACTIONS (4)
  - DRUG INEFFECTIVE [None]
  - INTESTINAL RESECTION [None]
  - PAIN [None]
  - ADVERSE EVENT [None]
